FAERS Safety Report 9275417 (Version 1)
Quarter: 2013Q2

REPORT INFORMATION
  Report Type: Spontaneous
  Country: US (occurrence: None)
  Receive Date: 20130501
  Receipt Date: 20130501
  Transmission Date: 20140414
  Serious: No
  Sender: FDA-Public Use
  Company Number: None

PATIENT
  Age: 56 Year
  Sex: Female
  Weight: 66.23 kg

DRUGS (1)
  1. SAVELLA [Suspect]
     Indication: PAIN MANAGEMENT
     Dates: start: 201301, end: 201303

REACTIONS (5)
  - Mania [None]
  - Anxiety [None]
  - Initial insomnia [None]
  - Decreased appetite [None]
  - Discomfort [None]
